FAERS Safety Report 24201869 (Version 1)
Quarter: 2024Q3

REPORT INFORMATION
  Report Type: Spontaneous
  Country: US (occurrence: US)
  Receive Date: 20240812
  Receipt Date: 20240812
  Transmission Date: 20241017
  Serious: No
  Sender: JOURNEY MEDICAL CORPORATION
  Company Number: US-JOURNEY MEDICAL CORPORATION-2023JNY00183

PATIENT
  Sex: Female
  Weight: 67.12 kg

DRUGS (6)
  1. QBREXZA [Suspect]
     Active Substance: GLYCOPYRRONIUM TOSYLATE
     Indication: Hyperhidrosis
     Dosage: 1 CLOTH, ONE SWIPE ON EACH UNDERARM
     Route: 061
     Dates: start: 2023, end: 2023
  2. QBREXZA [Suspect]
     Active Substance: GLYCOPYRRONIUM TOSYLATE
     Dosage: 1 CLOTH, TWO SWIPES ON EACH UNDERARM
     Route: 061
     Dates: start: 2023, end: 2023
  3. QBREXZA [Suspect]
     Active Substance: GLYCOPYRRONIUM TOSYLATE
     Dosage: 1 CLOTH, THREE SWIPES SWIPE ON EACH UNDERARM
     Route: 061
     Dates: start: 2023, end: 2023
  4. QBREXZA [Suspect]
     Active Substance: GLYCOPYRRONIUM TOSYLATE
     Dosage: 1 CLOTH, THREE SWIPES ON EACH UNDERARM
     Route: 061
     Dates: start: 2023, end: 20230824
  5. PANTOPRAZOLE [Concomitant]
     Active Substance: PANTOPRAZOLE
  6. ZYRTEC [Concomitant]
     Active Substance: CETIRIZINE HYDROCHLORIDE

REACTIONS (10)
  - Muscle spasms [Recovered/Resolved]
  - Dysuria [Recovered/Resolved]
  - Drug ineffective [Recovered/Resolved]
  - Vision blurred [Recovered/Resolved]
  - Dry mouth [Recovered/Resolved]
  - Erythema [Recovered/Resolved]
  - Constipation [Recovered/Resolved]
  - Mydriasis [Recovered/Resolved]
  - Overdose [Recovered/Resolved]
  - Wrong technique in product usage process [Recovered/Resolved]

NARRATIVE: CASE EVENT DATE: 20230101
